FAERS Safety Report 18344221 (Version 1)
Quarter: 2020Q4

REPORT INFORMATION
  Report Type: Spontaneous
  Country: US (occurrence: US)
  Receive Date: 20201005
  Receipt Date: 20201005
  Transmission Date: 20210114
  Serious: Yes (Hospitalization)
  Sender: FDA-Public Use
  Company Number: None

PATIENT
  Age: 86 Year
  Sex: Female

DRUGS (8)
  1. ALPRAZOLAM 0.5 MG BID [Concomitant]
     Dates: start: 20200614
  2. SERTRALINE 50 MG QDAY [Concomitant]
     Dates: start: 20200614
  3. BEXAROTENE. [Suspect]
     Active Substance: BEXAROTENE
     Indication: CUTANEOUS T-CELL LYMPHOMA
     Route: 048
     Dates: start: 20200627
  4. LOSARTAN 100 MG QDAY [Concomitant]
     Dates: start: 20200328
  5. METHOTREXATE 7.5 MG TWICE WEEKLY [Concomitant]
     Dates: start: 20200409
  6. CENTRUM OTC MULTIVITAMIN [Concomitant]
     Dates: start: 20200614
  7. FOLIC ACID 1 MG QDAY [Concomitant]
     Dates: start: 20200409
  8. DOXEPIN 25-50 MG QHS [Concomitant]
     Dates: start: 20200504

REACTIONS (3)
  - Atrial fibrillation [None]
  - Therapy cessation [None]
  - Oedema [None]

NARRATIVE: CASE EVENT DATE: 20200914
